FAERS Safety Report 9586132 (Version 2)
Quarter: 2013Q4

REPORT INFORMATION
  Report Type: Spontaneous
  Country: AT (occurrence: None)
  Receive Date: 20131001
  Receipt Date: 20131008
  Transmission Date: 20140711
  Serious: Yes (Hospitalization)
  Sender: FDA-Public Use
  Company Number: UTC-038426

PATIENT
  Age: 84 Year
  Sex: Male

DRUGS (1)
  1. REMODULIN [Suspect]
     Indication: PRODUCT USED FOR UNKNOWN INDICATION
     Route: 058
     Dates: start: 201210

REACTIONS (2)
  - Infusion site infection [None]
  - Wound [None]
